FAERS Safety Report 8070070-0 (Version None)
Quarter: 2012Q1

REPORT INFORMATION
  Report Type: 
  Country: None (occurrence: None)
  Receive Date: 20120125
  Receipt Date: 20120113
  Transmission Date: 20120608
  Serious: Yes (Death, Hospitalization)
  Sender: FDA-Public Use
  Company Number: JP-PFIZER INC-2011294184

PATIENT
  Age: 74 Year
  Sex: Female
  Weight: 45 kg

DRUGS (30)
  1. GRANISETRON [Concomitant]
     Indication: PREMEDICATION
     Dosage: 3 MG, UNK
     Route: 041
     Dates: start: 20110428, end: 20110630
  2. FLUMARIN [Concomitant]
     Indication: INFECTION
     Dosage: 2 G, UNK
     Route: 041
     Dates: start: 20110514, end: 20110514
  3. FLURBIPROFEN [Concomitant]
     Indication: PYREXIA
     Dosage: 50 MG, UNK
     Route: 041
     Dates: start: 20110710, end: 20110710
  4. ALBUMIN (HUMAN) [Concomitant]
     Indication: PROPHYLAXIS
     Dosage: 100 ML, UNK
     Route: 041
     Dates: start: 20110725, end: 20110727
  5. IRINOTECAN HCL [Suspect]
     Dosage: 100 MG/BODY (77.5 MG/M2)
     Route: 041
     Dates: start: 20110616, end: 20110630
  6. PANITUMUMAB [Suspect]
     Dosage: 240 MG/BODY
     Route: 041
     Dates: start: 20110616, end: 20110630
  7. PRAVASTATIN SODIUM [Concomitant]
     Indication: HYPERLIPIDAEMIA
     Dosage: 10 MG, UNK
     Route: 048
  8. SODIUM BICARBONATE [Concomitant]
     Indication: PROPHYLAXIS
     Dosage: UNK
     Route: 048
     Dates: start: 20110106
  9. ROCEPHIN [Concomitant]
     Indication: INFECTION
     Dosage: 2 G, UNK
     Route: 041
     Dates: start: 20110707, end: 20110710
  10. LANSOPRAZOLE [Concomitant]
     Indication: GASTROOESOPHAGEAL REFLUX DISEASE
     Dosage: 30 MG, UNK
     Route: 041
     Dates: start: 20110715, end: 20110720
  11. TS-1 [Suspect]
     Dosage: 25 MG, 2X/DAY
     Route: 048
     Dates: start: 20110616, end: 20110629
  12. BONALON 35MG [Concomitant]
     Indication: OSTEOPOROSIS
     Dosage: 35 MG, UNK
     Route: 048
  13. LASIX [Concomitant]
     Indication: OEDEMA
     Dosage: 20 ML, UNK
     Route: 042
     Dates: start: 20110725, end: 20110725
  14. LENDORMIN [Concomitant]
     Indication: INSOMNIA
     Dosage: 0.25 MG, UNK
     Route: 048
     Dates: start: 20100913
  15. HIRUDOID [Concomitant]
     Indication: PROPHYLAXIS
     Dosage: UNK
     Route: 061
     Dates: start: 20110427
  16. ACETAMINOPHEN [Concomitant]
     Indication: PAIN
     Dosage: UNK
     Route: 048
     Dates: start: 20110513
  17. CIPROFLOXACIN [Concomitant]
     Indication: INFECTION
     Dosage: 300 MG, 2X/DAY
     Route: 041
     Dates: start: 20110721, end: 20110727
  18. DEXAMETHASONE SODIUM PHOSPHATE [Concomitant]
     Indication: PREMEDICATION
     Dosage: 6.6 MG, UNK
     Route: 041
     Dates: start: 20110428, end: 20110630
  19. ONE-ALPHA [Concomitant]
     Indication: OSTEOPOROSIS
     Dosage: 1 UG, UNK
     Route: 048
  20. FAMOTIDINE [Concomitant]
     Indication: GASTROOESOPHAGEAL REFLUX DISEASE
     Dosage: 20 MG, UNK
     Route: 042
     Dates: start: 20110514, end: 20110515
  21. NAPROXEN [Concomitant]
     Indication: PYREXIA
     Dosage: 300 MG, 3X/DAY
     Route: 048
     Dates: start: 20110630
  22. IRINOTECAN HCL [Suspect]
     Indication: COLON CANCER
     Dosage: 160 MG/BODY (124 MG/M2)
     Route: 041
     Dates: start: 20110428, end: 20110428
  23. TS-1 [Suspect]
     Indication: COLON CANCER
     Dosage: 50 MG, 2X/DAY
     Route: 048
     Dates: start: 20110428, end: 20110511
  24. MEROPENEM [Concomitant]
     Indication: INFECTION
     Dosage: 2 G, UNK
     Route: 041
     Dates: start: 20110715, end: 20110720
  25. BETAMETHASONE [Concomitant]
     Indication: ENCEPHALITIS
     Dosage: 4 MG, 3X/DAY
     Route: 042
     Dates: start: 20110808, end: 20110808
  26. OLMESARTAN MEDOXOMIL [Concomitant]
     Indication: HYPERTENSION
     Dosage: 20 MG, UNK
     Route: 048
  27. MINOCYCLINE HCL [Concomitant]
     Indication: INFECTION
     Dosage: 100 MG, 2X/DAY
     Route: 048
     Dates: start: 20110427, end: 20110513
  28. MAXIPIME [Concomitant]
     Indication: INFECTION
     Dosage: 2-4 G
     Route: 041
     Dates: start: 20110514, end: 20110714
  29. PANITUMUMAB [Suspect]
     Indication: COLON CANCER
     Dosage: 270 MG/BODY
     Route: 041
     Dates: start: 20110428, end: 20110428
  30. LOCOID [Concomitant]
     Indication: PROPHYLAXIS
     Dosage: UNK
     Route: 061
     Dates: start: 20110427

REACTIONS (10)
  - HYPOALBUMINAEMIA [None]
  - STOMATITIS [None]
  - LIVER DISORDER [None]
  - DIARRHOEA [None]
  - ANAEMIA [None]
  - COLON CANCER [None]
  - FEBRILE NEUTROPENIA [None]
  - DISEASE PROGRESSION [None]
  - JAUNDICE [None]
  - ILEUS [None]
